FAERS Safety Report 11547076 (Version 1)
Quarter: 2015Q3

REPORT INFORMATION
  Report Type: Spontaneous
  Country: TR (occurrence: TR)
  Receive Date: 20150924
  Receipt Date: 20150924
  Transmission Date: 20151125
  Serious: Yes (Death)
  Sender: FDA-Public Use
  Company Number: TR-BAYER-2015-427071

PATIENT

DRUGS (1)
  1. REGORAFENIB [Suspect]
     Active Substance: REGORAFENIB

REACTIONS (2)
  - Blood bilirubin increased [None]
  - Death [Fatal]
